FAERS Safety Report 24639532 (Version 1)
Quarter: 2024Q4

REPORT INFORMATION
  Report Type: Report from Study
  Country: US (occurrence: US)
  Receive Date: 20241119
  Receipt Date: 20241119
  Transmission Date: 20250115
  Serious: Yes (Hospitalization)
  Sender: ALEXION PHARMACEUTICALS
  Company Number: US-AstraZeneca-CH-00746809A

PATIENT
  Weight: 180 kg

DRUGS (4)
  1. CAPIVASERTIB [Suspect]
     Active Substance: CAPIVASERTIB
     Indication: Breast cancer female
  2. CAPIVASERTIB [Suspect]
     Active Substance: CAPIVASERTIB
  3. CAPIVASERTIB [Suspect]
     Active Substance: CAPIVASERTIB
  4. CAPIVASERTIB [Suspect]
     Active Substance: CAPIVASERTIB

REACTIONS (4)
  - Adverse drug reaction [Not Recovered/Not Resolved]
  - Fall [Not Recovered/Not Resolved]
  - Asthenia [Not Recovered/Not Resolved]
  - Speech disorder [Recovering/Resolving]
